FAERS Safety Report 13074660 (Version 1)
Quarter: 2016Q4

REPORT INFORMATION
  Report Type: Spontaneous
  Country: US (occurrence: US)
  Receive Date: 20161230
  Receipt Date: 20161230
  Transmission Date: 20170207
  Serious: No
  Sender: FDA-Public Use
  Company Number: US-TEVA-639515USA

PATIENT
  Sex: Female

DRUGS (5)
  1. PROZAC [Concomitant]
     Active Substance: FLUOXETINE HYDROCHLORIDE
  2. TRAZODONE [Suspect]
     Active Substance: TRAZODONE HYDROCHLORIDE
     Indication: DEPRESSION
  3. TRAZODONE [Suspect]
     Active Substance: TRAZODONE HYDROCHLORIDE
     Indication: SEDATIVE THERAPY
     Route: 065
     Dates: start: 2013
  4. BUPROPION. [Concomitant]
     Active Substance: BUPROPION
  5. FLUOXETINE [Concomitant]
     Active Substance: FLUOXETINE HYDROCHLORIDE

REACTIONS (5)
  - Drug ineffective [Unknown]
  - Expired product administered [Unknown]
  - Middle insomnia [Recovered/Resolved]
  - Insomnia [Recovered/Resolved]
  - Product use issue [Unknown]

NARRATIVE: CASE EVENT DATE: 2015
